FAERS Safety Report 9614449 (Version 1)
Quarter: 2013Q4

REPORT INFORMATION
  Report Type: Report from Study
  Country: GB (occurrence: GB)
  Receive Date: 20131011
  Receipt Date: 20131011
  Transmission Date: 20140711
  Serious: Yes (Other)
  Sender: FDA-Public Use
  Company Number: GB-ACCORD-019866

PATIENT
  Age: 66 Year
  Sex: Male

DRUGS (1)
  1. MITOMYCIN [Suspect]
     Indication: CHEMOTHERAPY

REACTIONS (6)
  - Bladder perforation [Unknown]
  - Ureteric obstruction [Unknown]
  - Lower urinary tract symptoms [Unknown]
  - Off label use [Unknown]
  - Extravasation [Unknown]
  - Pelvic mass [Unknown]
